FAERS Safety Report 9753153 (Version 2)
Quarter: 2013Q4

REPORT INFORMATION
  Report Type: Spontaneous
  Country: US (occurrence: US)
  Receive Date: 20131213
  Receipt Date: 20131213
  Transmission Date: 20140711
  Serious: No
  Sender: FDA-Public Use
  Company Number: US-GILEAD-2010-0026314

PATIENT
  Age: 80 Year
  Sex: Female
  Weight: 94.62 kg

DRUGS (10)
  1. LETAIRIS [Suspect]
     Indication: PULMONARY ARTERIAL HYPERTENSION
     Route: 048
     Dates: start: 20090429
  2. WARFARIN [Concomitant]
  3. ATENOLOL [Concomitant]
  4. AMLODIPINE [Concomitant]
  5. LASIX [Concomitant]
  6. METFORMIN [Concomitant]
  7. ACTOS [Concomitant]
  8. PREVACID [Concomitant]
  9. EPIPEN [Concomitant]
  10. XYZAL [Concomitant]

REACTIONS (1)
  - Scratch [Not Recovered/Not Resolved]
